FAERS Safety Report 7212039-1 (Version None)
Quarter: 2010Q4

REPORT INFORMATION
  Report Type: 
  Country: None (occurrence: None)
  Receive Date: 20101229
  Receipt Date: 20101214
  Transmission Date: 20110411
  Serious: Yes (Other)
  Sender: FDA-Public Use
  Company Number: AUR-APL-2010-03204

PATIENT
  Age: 65 Year
  Sex: Male
  Weight: 82.54 kg

DRUGS (4)
  1. HYDROCHLOROTHIAZIDE [Suspect]
     Indication: HYPERTENSION
     Dosage: 25MG
     Dates: start: 20100101
  2. LIPITOR [Suspect]
     Indication: BLOOD CHOLESTEROL INCREASED
     Dosage: 10MG-QD
  3. BENICAR HCT [Suspect]
     Indication: HYPERTENSION
     Dosage: 20MG - QD
     Dates: start: 20100101
  4. WARFARIN SODIUM [Concomitant]

REACTIONS (4)
  - HYPERTENSION [None]
  - MUSCULAR WEAKNESS [None]
  - MUSCULOSKELETAL PAIN [None]
  - PNEUMONIA [None]
